FAERS Safety Report 9244521 (Version 2)
Quarter: 2013Q2

REPORT INFORMATION
  Report Type: Spontaneous
  Country: US (occurrence: US)
  Receive Date: 20130422
  Receipt Date: 20130515
  Transmission Date: 20140414
  Serious: Yes (Life-Threatening)
  Sender: FDA-Public Use
  Company Number: US-JNJFOC-20130309895

PATIENT
  Age: 37 Year
  Sex: Female
  Weight: 82.1 kg

DRUGS (7)
  1. BENADRYL [Suspect]
     Indication: RHINORRHOEA
     Route: 065
     Dates: start: 20110908, end: 20110908
  2. BENADRYL [Suspect]
     Indication: RHINORRHOEA
     Route: 065
     Dates: start: 20090709, end: 20090709
  3. ATIVAN [Concomitant]
     Indication: NERVE INJURY
     Dosage: 7 YEARS
     Route: 065
  4. SEROQUEL [Concomitant]
     Indication: CONTRACEPTION
     Dosage: 7 YEARS
     Route: 065
  5. DOXAZOSIN [Concomitant]
     Route: 065
  6. OXYCODONE [Concomitant]
     Route: 065
  7. LYRICA [Concomitant]
     Route: 065

REACTIONS (4)
  - Anaphylactic reaction [Recovered/Resolved]
  - Bronchospasm [None]
  - Urticaria [None]
  - Dyspnoea [None]
